FAERS Safety Report 7476904-2 (Version None)
Quarter: 2011Q2

REPORT INFORMATION
  Report Type: 
  Country: None (occurrence: None)
  Receive Date: 20110512
  Receipt Date: 20110428
  Transmission Date: 20111010
  Serious: Yes (Death, Other)
  Sender: FDA-Public Use
  Company Number: US-BAYER-200934392NA

PATIENT
  Age: 79 Year
  Sex: Female
  Weight: 90 kg

DRUGS (40)
  1. IMDUR [Concomitant]
     Dosage: 30 MG, QD
  2. MANNITOL [Concomitant]
     Dosage: 12.5 G, UNK
     Route: 042
     Dates: start: 20020125, end: 20020125
  3. COZAAR [Concomitant]
     Dosage: 50 MG, QD
  4. MILRINONE [Concomitant]
     Dosage: VARIABLE DRIP
     Route: 042
     Dates: start: 20020125
  5. BUMEX [Concomitant]
     Dosage: 3 MG, UNK
     Route: 042
     Dates: start: 20020125, end: 20020125
  6. ALBUMIN [ALBUMEN] [Concomitant]
     Dosage: 150 ML, PUMP PRIME
     Route: 042
     Dates: start: 20020125, end: 20020125
  7. OPTIRAY 350 [Concomitant]
     Dosage: 35 ML, UNK
     Route: 042
     Dates: start: 20020117, end: 20020117
  8. DIGOXIN [Concomitant]
     Dosage: UNK
     Route: 042
     Dates: start: 20020125, end: 20020125
  9. ALDACTONE [Concomitant]
     Dosage: 25 MG, QD
  10. VERSED [Concomitant]
     Dosage: 5 MG, UNK
     Route: 042
     Dates: start: 20020125, end: 20020125
  11. FENTANYL [Concomitant]
     Dosage: 450 MG, (PLUS INFUSION DRIP)
     Route: 042
     Dates: start: 20020125, end: 20020125
  12. ISOFLURANE [Concomitant]
     Dosage: UNK, INHALED
     Route: 055
     Dates: start: 20020125, end: 20020125
  13. REMIFENTANIL [Concomitant]
     Dosage: UNK
     Route: 042
     Dates: start: 20020125, end: 20020125
  14. PROPOFOL [Concomitant]
     Dosage: VARIABLE DRIP
     Route: 042
     Dates: start: 20020125, end: 20020125
  15. NORMOSOL [Concomitant]
     Dosage: 1200 ML, UNK
     Route: 042
     Dates: start: 20020125, end: 20020125
  16. RED BLOOD CELLS [Concomitant]
     Dosage: 2 U, UNK
     Route: 042
     Dates: start: 20020125, end: 20020125
  17. ZANTAC [Concomitant]
     Dosage: 50 MG, UNK
     Route: 042
     Dates: start: 20020125, end: 20020125
  18. SOLU-MEDROL [Concomitant]
     Dosage: 1 G, UNK
     Route: 042
     Dates: start: 20020125, end: 20020125
  19. LASIX [Concomitant]
     Dosage: 200 MG, UNK
     Route: 042
     Dates: start: 20020125, end: 20020125
  20. REGLAN [Concomitant]
     Dosage: 5 MG, UNK
     Route: 042
     Dates: start: 20020125, end: 20020125
  21. LEVOPHED [Concomitant]
     Dosage: VARIABLE DRIP
     Route: 042
     Dates: start: 20020125
  22. INSULIN [INSULIN] [Concomitant]
     Dosage: 10 U, UNK
     Route: 042
     Dates: start: 20020125, end: 20020125
  23. ANCEF [Concomitant]
     Dosage: 2 G, UNK
     Route: 042
     Dates: start: 20020125, end: 20020125
  24. TRASYLOL [Suspect]
     Dosage: 50 ML/HR (INFUSION)
     Route: 042
     Dates: start: 20020125, end: 20020125
  25. COUMADIN [Concomitant]
     Dosage: 5 MG, QD
  26. NITROGLYCERIN [Concomitant]
     Dosage: VARIABLE DRIP
     Route: 042
     Dates: start: 20020125
  27. NORMOSOL R [Concomitant]
     Dosage: 1000 UNK, PUMP PRIME
     Route: 042
     Dates: start: 20020125, end: 20020125
  28. HEPARIN [Concomitant]
     Dosage: 400 MG, PUMP PRIME
     Route: 042
     Dates: start: 20020125, end: 20020125
  29. MAGNESIUM SULFATE [Concomitant]
     Dosage: 2 G, PUMP PRIME
     Route: 042
     Dates: start: 20020125, end: 20020125
  30. LIDOCAINE [Concomitant]
     Dosage: 100 MG, PUMP PRIME
     Route: 042
     Dates: start: 20020125, end: 20020125
  31. TRASYLOL [Suspect]
     Indication: AORTIC VALVE REPLACEMENT
     Dosage: 200 ML, ONCE (LOADING)
     Route: 042
     Dates: start: 20020125, end: 20020125
  32. DIGOXIN [Concomitant]
     Dosage: 0.125 MG, QD
  33. DOPAMINE HCL [Concomitant]
     Dosage: VARIABLE DRIP
     Route: 042
     Dates: start: 20020125
  34. MANNITOL [Concomitant]
     Dosage: 12.5 MG, UNK
     Route: 042
     Dates: start: 20020125, end: 20020125
  35. PLATELETS [Concomitant]
     Dosage: 1 U, UNK
     Route: 042
     Dates: start: 20020125, end: 20020125
  36. FRESH FROZEN PLASMA [Concomitant]
     Dosage: 2 U, UNK
     Route: 042
     Dates: start: 20020125, end: 20020125
  37. LASIX [Concomitant]
     Dosage: 40 MG, QD
  38. PROTAMINE SULFATE [Concomitant]
     Dosage: 430 MG, UNK
     Route: 042
     Dates: start: 20020125, end: 20020125
  39. CALCIUM CHLORIDE [Concomitant]
     Dosage: 2000 MG, UNK
     Route: 042
     Dates: start: 20020125, end: 20020125
  40. SODIUM BICARBONATE [Concomitant]
     Dosage: 50 MEQ, PUMP PRIME
     Route: 042
     Dates: start: 20020125, end: 20020125

REACTIONS (14)
  - RENAL FAILURE [None]
  - PAIN [None]
  - NERVOUSNESS [None]
  - RENAL INJURY [None]
  - INJURY [None]
  - DISABILITY [None]
  - MULTI-ORGAN FAILURE [None]
  - UNEVALUABLE EVENT [None]
  - DEPRESSION [None]
  - DEATH [None]
  - ANXIETY [None]
  - FEAR [None]
  - EMOTIONAL DISTRESS [None]
  - ANHEDONIA [None]
